FAERS Safety Report 7000804-5 (Version None)
Quarter: 2010Q3

REPORT INFORMATION
  Report Type: 
  Country: None (occurrence: None)
  Receive Date: 20100920
  Receipt Date: 20090924
  Transmission Date: 20110219
  Serious: No
  Sender: FDA-Public Use
  Company Number: US-ASTRAZENECA-2009SE15307

PATIENT
  Age: 18975 Day
  Sex: Male
  Weight: 95.3 kg

DRUGS (5)
  1. SEROQUEL XR [Suspect]
     Route: 048
     Dates: start: 20090922, end: 20090901
  2. CYMBALTA [Concomitant]
  3. ADAPEX [Concomitant]
  4. FEARVAN [Concomitant]
  5. SUBOXONE [Concomitant]

REACTIONS (3)
  - DYSSTASIA [None]
  - SLUGGISHNESS [None]
  - SOMNOLENCE [None]
